FAERS Safety Report 16892189 (Version 5)
Quarter: 2019Q4

REPORT INFORMATION
  Report Type: Report from Study
  Country: IT (occurrence: IT)
  Receive Date: 20191007
  Receipt Date: 20191126
  Transmission Date: 20200122
  Serious: Yes (Hospitalization, Disabling, Other)
  Sender: FDA-Public Use
  Company Number: IT-GILEAD-2019-0431824

PATIENT
  Age: 50 Year
  Sex: Female
  Weight: 65 kg

DRUGS (12)
  1. TRIMETON [SULFAMETHOXAZOLE;TRIMETHOPRIM] [Concomitant]
  2. CYCLOPHOSPHAMIDE. [Suspect]
     Active Substance: CYCLOPHOSPHAMIDE
     Indication: NON-HODGKIN^S LYMPHOMA
     Dosage: 800 MG, QD
     Route: 042
     Dates: start: 20190918, end: 20190920
  3. LANSOPRAZOLE. [Concomitant]
     Active Substance: LANSOPRAZOLE
     Dosage: 30 MG
     Route: 048
  4. BACTRIM [Concomitant]
     Active Substance: SULFAMETHOXAZOLE\TRIMETHOPRIM
     Indication: PROPHYLAXIS
  5. AXICABTAGENE CILOLEUCEL [Suspect]
     Active Substance: AXICABTAGENE CILOLEUCEL
     Indication: NON-HODGKIN^S LYMPHOMA
     Dosage: 0.4-2X10^8
     Route: 042
     Dates: start: 20190923, end: 20190923
  6. FLUDARABINE [Suspect]
     Active Substance: FLUDARABINE PHOSPHATE
     Indication: NON-HODGKIN^S LYMPHOMA
     Dosage: 48 MG, QD
     Route: 042
     Dates: start: 20190918, end: 20190920
  7. ACICLOVIR [Concomitant]
     Active Substance: ACYCLOVIR
     Indication: PROPHYLAXIS
     Dosage: 1 DOSAGE FORM, TID
  8. ACICLOVIR [Concomitant]
     Active Substance: ACYCLOVIR
     Dosage: 1200 MG
     Route: 048
  9. KEPPRA [Concomitant]
     Active Substance: LEVETIRACETAM
     Indication: PROPHYLAXIS
     Dosage: 1 DOSAGE FORM, BID
  10. KEPPRA [Concomitant]
     Active Substance: LEVETIRACETAM
     Dosage: 1 G
     Route: 048
  11. LANSOPRAZOLE. [Concomitant]
     Active Substance: LANSOPRAZOLE
     Indication: PROPHYLAXIS
     Dosage: 1 DOSAGE FORM, QD
  12. ENOXAPARIN [Concomitant]
     Active Substance: ENOXAPARIN
     Indication: PROPHYLAXIS
     Dosage: 1 DOSAGE FORM, QD
     Route: 048

REACTIONS (2)
  - Staphylococcal infection [Recovered/Resolved]
  - Pyrexia [Recovered/Resolved]

NARRATIVE: CASE EVENT DATE: 20190923
